APPROVED DRUG PRODUCT: NYSTATIN
Active Ingredient: NYSTATIN
Strength: 500,000 UNITS
Dosage Form/Route: TABLET;ORAL
Application: A062506 | Product #001 | TE Code: AA
Applicant: TEVA PHARMACEUTICALS USA INC
Approved: Jan 16, 1984 | RLD: No | RS: Yes | Type: RX